FAERS Safety Report 9112587 (Version 4)
Quarter: 2014Q3

REPORT INFORMATION
  Report Type: Spontaneous
  Country: US (occurrence: US)
  Receive Date: 20130211
  Receipt Date: 20140715
  Transmission Date: 20150326
  Serious: Yes (Hospitalization, Other)
  Sender: FDA-Public Use
  Company Number: US-009507513-1302USA002874

PATIENT
  Sex: Female
  Weight: 74.83 kg

DRUGS (3)
  1. ALBUTEROL. [Concomitant]
     Active Substance: ALBUTEROL
     Indication: ASTHMA
     Dosage: UNK
     Dates: start: 1980
  2. NUVARING [Suspect]
     Active Substance: ETHINYL ESTRADIOL\ETONOGESTREL
     Indication: MENOPAUSAL SYMPTOMS
     Dosage: UNK
     Route: 067
     Dates: start: 20080718, end: 20090126
  3. DEPO-PROVERA [Suspect]
     Active Substance: MEDROXYPROGESTERONE ACETATE
     Indication: MENOPAUSAL SYMPTOMS
     Dosage: UNK
     Dates: end: 20090126

REACTIONS (28)
  - Spinal operation [Unknown]
  - Varicose vein [Unknown]
  - Pain in extremity [Unknown]
  - Iodine allergy [Unknown]
  - Angina pectoris [Unknown]
  - Chest pain [Unknown]
  - Vasomotor rhinitis [Not Recovered/Not Resolved]
  - Drug hypersensitivity [Unknown]
  - Palpitations [Unknown]
  - Hypertension [Unknown]
  - Osteopenia [Unknown]
  - Adverse drug reaction [Unknown]
  - Spinal column stenosis [Unknown]
  - Pulmonary embolism [Unknown]
  - Electrocardiogram PR shortened [Unknown]
  - Vaginal haemorrhage [Unknown]
  - Atelectasis [Unknown]
  - Off label use [Unknown]
  - Back pain [Not Recovered/Not Resolved]
  - Anxiety [Unknown]
  - Cervix disorder [Unknown]
  - Chest discomfort [Not Recovered/Not Resolved]
  - Gastrooesophageal reflux disease [Unknown]
  - Back pain [Unknown]
  - Coagulopathy [Unknown]
  - Deep vein thrombosis [Unknown]
  - Hiatus hernia [Unknown]
  - Respiratory disorder [Unknown]

NARRATIVE: CASE EVENT DATE: 200901
